FAERS Safety Report 13192460 (Version 1)
Quarter: 2017Q1

REPORT INFORMATION
  Report Type: Spontaneous
  Country: US (occurrence: US)
  Receive Date: 20161207
  Receipt Date: 20161207
  Transmission Date: 20170428
  Serious: Yes (Hospitalization)
  Sender: FDA-Public Use
  Company Number: None

PATIENT
  Age: 62 Year
  Sex: Male
  Weight: 76.2 kg

DRUGS (11)
  1. MORPHINE SULFATE IMMEDIATE RELEASE [Concomitant]
  2. MS CONTIN [Concomitant]
     Active Substance: MORPHINE SULFATE
  3. COMPAZINE [Concomitant]
     Active Substance: PROCHLORPERAZINE MALEATE
  4. POTASSIUM CHLORIDE. [Concomitant]
     Active Substance: POTASSIUM CHLORIDE
  5. ASPIRIN. [Concomitant]
     Active Substance: ASPIRIN
  6. LORAZEPAM. [Concomitant]
     Active Substance: LORAZEPAM
  7. PRAVASTATIN. [Concomitant]
     Active Substance: PRAVASTATIN
  8. ABRAXANE [Suspect]
     Active Substance: PACLITAXEL
     Indication: PANCREATIC CARCINOMA METASTATIC
     Dosage: EVERY 2 WEEKS IV
     Route: 042
     Dates: start: 20161102, end: 20161121
  9. SENOKOT [Concomitant]
     Active Substance: SENNOSIDES
  10. AMLODIPINE [Concomitant]
     Active Substance: AMLODIPINE BESYLATE
  11. ZOFRAN-ODT [Concomitant]

REACTIONS (3)
  - Nausea [None]
  - Vomiting [None]
  - Jaundice [None]

NARRATIVE: CASE EVENT DATE: 20161201
